FAERS Safety Report 6390972-0 (Version None)
Quarter: 2009Q4

REPORT INFORMATION
  Report Type: 
  Country: None (occurrence: None)
  Receive Date: 20091006
  Receipt Date: 20090929
  Transmission Date: 20100525
  Serious: Yes (Other)
  Sender: FDA-Public Use
  Company Number: US-JNJCH-2009026010

PATIENT
  Sex: Male

DRUGS (1)
  1. ZYRTEC [Suspect]
     Indication: DRUG USE FOR UNKNOWN INDICATION
     Dosage: TEXT:UNKNOWN
     Route: 048

REACTIONS (3)
  - DYSPNOEA [None]
  - IMMUNE SYSTEM DISORDER [None]
  - UNRESPONSIVE TO STIMULI [None]
